FAERS Safety Report 11133636 (Version 1)
Quarter: 2015Q2

REPORT INFORMATION
  Report Type: Spontaneous
  Country: US (occurrence: US)
  Receive Date: 20150523
  Receipt Date: 20150523
  Transmission Date: 20150821
  Serious: No
  Sender: FDA-Public Use
  Company Number: US-JNJFOC-20140312541

PATIENT
  Age: 26 Year
  Sex: Female

DRUGS (4)
  1. SIRTURO [Suspect]
     Active Substance: BEDAQUILINE FUMARATE
     Indication: TUBERCULOSIS
     Route: 065
  2. AMIKACIN [Concomitant]
     Active Substance: AMIKACIN
  3. MOXIFLOXACIN [Concomitant]
     Active Substance: MOXIFLOXACIN
  4. CYCLOSERINE. [Concomitant]
     Active Substance: CYCLOSERINE

REACTIONS (2)
  - Onychoclasis [Unknown]
  - Alopecia [Unknown]
